FAERS Safety Report 10222477 (Version 1)
Quarter: 2014Q2

REPORT INFORMATION
  Report Type: Report from Study
  Country: US (occurrence: US)
  Receive Date: 20140606
  Receipt Date: 20140606
  Transmission Date: 20141212
  Serious: Yes (Hospitalization)
  Sender: FDA-Public Use
  Company Number: US-PURDUE-USA-2014-0114661

PATIENT
  Age: 58 Year
  Sex: Male

DRUGS (1)
  1. OXY CR TAB [Suspect]
     Indication: CANCER PAIN
     Dosage: 20 MG, UNK
     Dates: start: 20140513

REACTIONS (4)
  - Adenocarcinoma [Not Recovered/Not Resolved]
  - Back pain [Not Recovered/Not Resolved]
  - Inadequate analgesia [Not Recovered/Not Resolved]
  - Somnolence [Not Recovered/Not Resolved]
